FAERS Safety Report 18505908 (Version 1)
Quarter: 2020Q4

REPORT INFORMATION
  Report Type: Spontaneous
  Country: DE (occurrence: DE)
  Receive Date: 20201116
  Receipt Date: 20201116
  Transmission Date: 20210114
  Serious: Yes (Hospitalization)
  Sender: FDA-Public Use
  Company Number: DE-TEVA-2020-DE-1848639

PATIENT
  Age: 39 Year
  Sex: Female

DRUGS (10)
  1. RALTITREXED [Suspect]
     Active Substance: RALTITREXED
     Dosage: 01082020
  2. MIRTAZAPIN [Concomitant]
     Active Substance: MIRTAZAPINE
     Dosage: 15 MILLIGRAM DAILY; 0-0-1-0
  3. METAMIZOL [Concomitant]
     Active Substance: METAMIZOLE SODIUM
     Dosage: 2000 MILLIGRAM DAILY; 1-1-1-1
  4. OXALIPLATIN. [Suspect]
     Active Substance: OXALIPLATIN
     Dosage: 01082020
  5. HYDROMORPHON [Concomitant]
     Active Substance: HYDROMORPHONE
     Dosage: 7.8 MILLIGRAM DAILY;
  6. PANTOPRAZOL [Concomitant]
     Active Substance: PANTOPRAZOLE SODIUM
     Dosage: 20 MILLIGRAM DAILY; 1-0-0-0
  7. BISACODYL. [Concomitant]
     Active Substance: BISACODYL
     Dosage: 1 DOSAGE FORMS DAILY; 1-0-0-0
  8. PANITUMUMAB [Suspect]
     Active Substance: PANITUMUMAB
     Dosage: 01082020
  9. SPIRONOLACTON [Concomitant]
     Active Substance: SPIRONOLACTONE
     Dosage: 25 MILLIGRAM DAILY;  1-0-0-0
  10. METOPROLOL. [Concomitant]
     Active Substance: METOPROLOL
     Dosage: 95 MILLIGRAM DAILY;  1-0-1-0

REACTIONS (7)
  - Dyspnoea [Unknown]
  - General physical health deterioration [Unknown]
  - Ascites [Unknown]
  - Condition aggravated [Unknown]
  - Abdominal distension [Unknown]
  - Rash [Unknown]
  - Diarrhoea [Unknown]
